FAERS Safety Report 14349845 (Version 1)
Quarter: 2018Q1

REPORT INFORMATION
  Report Type: Spontaneous
  Country: US (occurrence: US)
  Receive Date: 20180103
  Receipt Date: 20180103
  Transmission Date: 20180509
  Serious: Yes (Life-Threatening)
  Sender: FDA-Public Use
  Company Number: None

PATIENT
  Age: 76 Year
  Sex: Female
  Weight: 77.4 kg

DRUGS (1)
  1. CYCLOBENZAPRINE. [Suspect]
     Active Substance: CYCLOBENZAPRINE
     Indication: BACK PAIN
     Route: 048

REACTIONS (10)
  - Rash [None]
  - Rash pruritic [None]
  - Wound secretion [None]
  - Lip blister [None]
  - Rash maculo-papular [None]
  - Blister [None]
  - Blood blister [None]
  - Rash pustular [None]
  - Oral mucosal blistering [None]
  - Toxic epidermal necrolysis [None]

NARRATIVE: CASE EVENT DATE: 20171230
